FAERS Safety Report 5053608-7 (Version None)
Quarter: 2006Q3

REPORT INFORMATION
  Report Type: 
  Country: None (occurrence: None)
  Receive Date: 20060718
  Receipt Date: 20060706
  Transmission Date: 20061208
  Serious: Yes (Other)
  Sender: FDA-Public Use
  Company Number: PHNU2006DE02464

PATIENT
  Age: 79 Year
  Sex: Male

DRUGS (1)
  1. ZOMETA [Suspect]
     Indication: PROSTATE CANCER
     Dosage: UNK, QMO
     Dates: start: 20040719, end: 20060407

REACTIONS (3)
  - OSTEITIS [None]
  - OSTEONECROSIS [None]
  - STOMATITIS [None]
